FAERS Safety Report 23375616 (Version 2)
Quarter: 2024Q1

REPORT INFORMATION
  Report Type: Spontaneous
  Country: DE (occurrence: DE)
  Receive Date: 20240107
  Receipt Date: 20240206
  Transmission Date: 20240410
  Serious: Yes (Hospitalization, Other)
  Sender: FDA-Public Use
  Company Number: DE-BRISTOL-MYERS SQUIBB COMPANY-2023-158292

PATIENT
  Age: 7 Decade
  Sex: Male
  Weight: 88 kg

DRUGS (23)
  1. REBLOZYL [Suspect]
     Active Substance: LUSPATERCEPT-AAMT
     Indication: Myelodysplastic syndrome
     Dosage: DOSE : 1.75 MG/KG/BODYWEIGHT;     FREQ : UNAVAILABLE
     Dates: start: 2022
  2. REBLOZYL [Suspect]
     Active Substance: LUSPATERCEPT-AAMT
     Dates: end: 202311
  3. REBLOZYL [Suspect]
     Active Substance: LUSPATERCEPT-AAMT
     Dates: end: 202311
  4. REBLOZYL [Suspect]
     Active Substance: LUSPATERCEPT-AAMT
     Route: 058
     Dates: start: 202208, end: 202311
  5. HYDROCORTISONE [Concomitant]
     Active Substance: HYDROCORTISONE
     Indication: Psoriasis
     Dates: start: 20231125
  6. HYDROCORTISONE [Concomitant]
     Active Substance: HYDROCORTISONE
     Indication: Fatigue
     Dates: start: 20231014
  7. PANTOPRAZOLE [Concomitant]
     Active Substance: PANTOPRAZOLE
     Indication: Prophylaxis
     Dosage: STOMACH PROTECTION, HALF AN HOUR BEFORE BREAKFAST
  8. CIPRALEX [Concomitant]
     Active Substance: ESCITALOPRAM OXALATE
     Indication: Depression
  9. PRAVASTATIN [Concomitant]
     Active Substance: PRAVASTATIN
     Indication: Prophylaxis
  10. URSODIOL [Concomitant]
     Active Substance: URSODIOL
     Indication: Hepatobiliary disorder prophylaxis
  11. VITAMIN K [Concomitant]
     Active Substance: PHYTONADIONE
     Indication: Product used for unknown indication
  12. VITAMIN B COMPLEX [Concomitant]
     Active Substance: CYANOCOBALAMIN\DEXPANTHENOL\NIACINAMIDE\PYRIDOXINE HYDROCHLORIDE\RIBOFLAVIN 5^-PHOSPHATE SODIUM\THIA
     Indication: Product used for unknown indication
  13. ACETYLCYSTEINE [Concomitant]
     Active Substance: ACETYLCYSTEINE
     Indication: Product used for unknown indication
  14. DEFERASIROX [Concomitant]
     Active Substance: DEFERASIROX
     Indication: Blood iron increased
  15. NOVALGIN (METAMIZOLE SODIUM) [Concomitant]
     Active Substance: METAMIZOLE SODIUM
     Indication: Pain
     Dosage: MAXIMUM 4 TIMES A DAY FOR PAIN
  16. CHOLECALCIFEROL [Concomitant]
     Active Substance: CHOLECALCIFEROL
     Indication: Osteoporosis
     Dosage: MAXIMUM 4 TIMES A DAY FOR PAIN
  17. ALENDRONATE SODIUM [Concomitant]
     Active Substance: ALENDRONATE SODIUM
     Indication: Osteoporosis
     Dosage: MAXIMUM 4 TIMES A DAY FOR PAIN
  18. METHYLPREDNISOLONE [Concomitant]
     Active Substance: METHYLPREDNISOLONE
     Indication: Product used for unknown indication
     Dosage: ON INJECTION SITES FOR COPPER
  19. DIMETHINDENE [Concomitant]
     Active Substance: DIMETHINDENE
     Indication: Product used for unknown indication
     Dosage: ON INJECTION SITES FOR COPPER
  20. CALCIPOTRIENE [Concomitant]
     Active Substance: CALCIPOTRIENE
     Indication: Product used for unknown indication
  21. CALCIPOTRIOL BETAMETHASONE [Concomitant]
     Indication: Product used for unknown indication
  22. COPPER GLUCONATE [Concomitant]
     Active Substance: COPPER GLUCONATE
     Indication: Product substitution
  23. MINERALS\VITAMINS [Concomitant]
     Active Substance: MINERALS\VITAMINS
     Indication: Nutritional supplementation
     Dosage: MAXIMUM 4 TIMES A DAY FOR PAIN

REACTIONS (8)
  - Syncope [Not Recovered/Not Resolved]
  - Pericardial effusion [Not Recovered/Not Resolved]
  - Thrombocytosis [Not Recovered/Not Resolved]
  - Urinary retention [Not Recovered/Not Resolved]
  - Fall [Not Recovered/Not Resolved]
  - Renal colic [Not Recovered/Not Resolved]
  - Gene mutation identification test positive [Not Recovered/Not Resolved]
  - Spinal deformity [Not Recovered/Not Resolved]

NARRATIVE: CASE EVENT DATE: 20230101
